FAERS Safety Report 21028395 (Version 1)
Quarter: 2022Q2

REPORT INFORMATION
  Report Type: Spontaneous
  Country: ES (occurrence: ES)
  Receive Date: 20220630
  Receipt Date: 20220630
  Transmission Date: 20220721
  Serious: Yes (Hospitalization, Other)
  Sender: FDA-Public Use
  Company Number: ES-VALIDUS PHARMACEUTICALS LLC-ES-VDP-2022-015587

PATIENT

DRUGS (4)
  1. CEFOTAXIME SODIUM [Suspect]
     Active Substance: CEFOTAXIME SODIUM
     Indication: Surgery
     Dosage: 2400 MG, QID
     Route: 042
     Dates: start: 20211125, end: 20211213
  2. CLOXACILLIN [Suspect]
     Active Substance: CLOXACILLIN
     Indication: Surgery
     Dosage: 1600 MG, QID
     Route: 042
     Dates: start: 20211202, end: 20211213
  3. METHYLPREDNISOLONE [Suspect]
     Active Substance: METHYLPREDNISOLONE
     Indication: Surgery
     Dosage: 20 MG, CONT
     Route: 048
     Dates: start: 20211203, end: 20211210
  4. METRONIDAZOLE [Suspect]
     Active Substance: METRONIDAZOLE
     Indication: Surgery
     Dosage: 350 MG, TID
     Route: 042
     Dates: start: 20211202, end: 20211213

REACTIONS (6)
  - Hepatic cytolysis [Recovered/Resolved]
  - Hyperbilirubinaemia [Recovered/Resolved]
  - Drug reaction with eosinophilia and systemic symptoms [Recovered/Resolved]
  - Coagulopathy [Recovered/Resolved]
  - Rash morbilliform [Recovered/Resolved]
  - Agranulocytosis [Recovered/Resolved]
